FAERS Safety Report 6952338-1 (Version None)
Quarter: 2010Q3

REPORT INFORMATION
  Report Type: 
  Country: None (occurrence: None)
  Receive Date: 20100829
  Receipt Date: 20100430
  Transmission Date: 20110219
  Serious: No
  Sender: FDA-Public Use
  Company Number: US-ABBOTT-10P-163-0641869-00

PATIENT
  Sex: Female
  Weight: 65.83 kg

DRUGS (7)
  1. NIASPAN [Suspect]
     Indication: HYPERLIPIDAEMIA
     Dosage: AT NIGHT
     Dates: start: 20080401
  2. NIASPAN [Suspect]
     Dosage: AT NIGHT
  3. ZOCOR [Concomitant]
     Indication: PRODUCT USED FOR UNKNOWN INDICATION
  4. FOSAMAX [Concomitant]
     Indication: PRODUCT USED FOR UNKNOWN INDICATION
  5. MVT [Concomitant]
     Indication: PRODUCT USED FOR UNKNOWN INDICATION
  6. CALCIUM W/VITAMIN D [Concomitant]
     Indication: PRODUCT USED FOR UNKNOWN INDICATION
  7. FOLIC ACID [Concomitant]
     Indication: PRODUCT USED FOR UNKNOWN INDICATION

REACTIONS (2)
  - FLUSHING [None]
  - NIGHT SWEATS [None]
